FAERS Safety Report 6290792-1 (Version None)
Quarter: 2009Q3

REPORT INFORMATION
  Report Type: 
  Country: None (occurrence: None)
  Receive Date: 20090729
  Receipt Date: 20090729
  Transmission Date: 20100115
  Serious: Yes (Hospitalization)
  Sender: FDA-Public Use
  Company Number: None

PATIENT
  Age: 78 Year
  Sex: Female

DRUGS (1)
  1. CLONAZEPAM [Suspect]
     Dosage: 2 MG TID PO
     Route: 048
     Dates: start: 20090106, end: 20090605

REACTIONS (2)
  - ANGINA PECTORIS [None]
  - TACHYCARDIA [None]
